FAERS Safety Report 18533321 (Version 3)
Quarter: 2020Q4

REPORT INFORMATION
  Report Type: Report from Study
  Country: US (occurrence: US)
  Receive Date: 20201123
  Receipt Date: 20201224
  Transmission Date: 20210114
  Serious: Yes (Hospitalization, Other)
  Sender: FDA-Public Use
  Company Number: NVSC2020US303262

PATIENT
  Sex: Male

DRUGS (1)
  1. COSENTYX [Suspect]
     Active Substance: SECUKINUMAB
     Indication: PSORIASIS
     Dosage: 300 MG, QMO
     Route: 058

REACTIONS (7)
  - Diarrhoea [Unknown]
  - Gastric infection [Unknown]
  - Psoriasis [Unknown]
  - Diabetes mellitus [Unknown]
  - Eating disorder [Unknown]
  - Drug ineffective [Unknown]
  - Hypoaesthesia [Unknown]
